FAERS Safety Report 5591408-X (Version None)
Quarter: 2008Q1

REPORT INFORMATION
  Report Type: 
  Country: None (occurrence: None)
  Receive Date: 20080111
  Receipt Date: 20080111
  Transmission Date: 20080703
  Serious: No
  Sender: FDA-Public Use
  Company Number: None

PATIENT
  Age: 43 Year
  Sex: Female
  Weight: 55.3388 kg

DRUGS (1)
  1. CHANTIX [Suspect]
     Indication: SMOKING CESSATION THERAPY
     Dosage: 1 BID

REACTIONS (21)
  - ASTHMA [None]
  - CHEST PAIN [None]
  - CRYING [None]
  - DEPRESSION [None]
  - FATIGUE [None]
  - FEAR [None]
  - FEELING ABNORMAL [None]
  - FEELING COLD [None]
  - FORMICATION [None]
  - INSOMNIA [None]
  - MUSCLE TWITCHING [None]
  - PAIN [None]
  - PRURITUS [None]
  - PSYCHIATRIC SYMPTOM [None]
  - SCRATCH [None]
  - SCREAMING [None]
  - SELF-INJURIOUS IDEATION [None]
  - SKIN DISORDER [None]
  - THINKING ABNORMAL [None]
  - URINARY INCONTINENCE [None]
  - VIOLENCE-RELATED SYMPTOM [None]
